FAERS Safety Report 14255163 (Version 1)
Quarter: 2017Q4

REPORT INFORMATION
  Report Type: Spontaneous
  Country: JP (occurrence: JP)
  Receive Date: 20171206
  Receipt Date: 20171206
  Transmission Date: 20180321
  Serious: Yes (Hospitalization)
  Sender: FDA-Public Use
  Company Number: JP-GLAXOSMITHKLINE-JP2017JPN182760

PATIENT
  Sex: Female

DRUGS (2)
  1. FLUTIDE DISKUS [Suspect]
     Active Substance: FLUTICASONE PROPIONATE
     Dosage: UNK
     Route: 055
  2. FERROMIA (JAPAN) [Concomitant]
     Dosage: UNK

REACTIONS (2)
  - Malaise [Unknown]
  - Blood disorder [Unknown]

NARRATIVE: CASE EVENT DATE: 201601
